FAERS Safety Report 6395073-3 (Version None)
Quarter: 2009Q4

REPORT INFORMATION
  Report Type: 
  Country: None (occurrence: None)
  Receive Date: 20091009
  Receipt Date: 20090928
  Transmission Date: 20100525
  Serious: Yes (Other)
  Sender: FDA-Public Use
  Company Number: FR-PFIZER INC-2009275933

PATIENT
  Age: 40 Year

DRUGS (1)
  1. LYRICA [Suspect]
     Indication: NEURALGIA
     Dosage: UNK
     Dates: start: 20090801

REACTIONS (4)
  - HYPOCAPNIA [None]
  - HYPOXIA [None]
  - NOCTURNAL DYSPNOEA [None]
  - OBSTRUCTIVE AIRWAYS DISORDER [None]
